FAERS Safety Report 5787435-X (Version None)
Quarter: 2008Q2

REPORT INFORMATION
  Report Type: 
  Country: None (occurrence: None)
  Receive Date: 20080625
  Receipt Date: 20080617
  Transmission Date: 20081010
  Serious: Yes (Hospitalization)
  Sender: FDA-Public Use
  Company Number: DE-ASTRAZENECA-2008PK01186

PATIENT
  Age: 17831 Day
  Sex: Male

DRUGS (3)
  1. SEROQUEL PROLONG [Suspect]
     Indication: SCHIZOPHRENIA
     Route: 048
     Dates: start: 20080508
  2. HALOPERIDOL [Suspect]
     Indication: SCHIZOPHRENIA
     Route: 048
     Dates: start: 20080508, end: 20080530
  3. DIAZEPAM [Concomitant]
     Indication: RESTLESSNESS
     Route: 048
     Dates: start: 20080508, end: 20080521

REACTIONS (2)
  - LEUKOPENIA [None]
  - THROMBOCYTOPENIA [None]
